FAERS Safety Report 4566467-3 (Version None)
Quarter: 2005Q1

REPORT INFORMATION
  Report Type: 
  Country: None (occurrence: None)
  Receive Date: 20050128
  Receipt Date: 20050114
  Transmission Date: 20050727
  Serious: Yes (Hospitalization)
  Sender: FDA-Public Use
  Company Number: 2005BI000945

PATIENT
  Age: 64 Year
  Sex: Female

DRUGS (5)
  1. ZEVALIN [Suspect]
     Indication: NON-HODGKIN'S LYMPHOMA
     Dosage: SEE IMAGE
     Route: 042
     Dates: start: 20040101, end: 20040101
  2. ZEVALIN [Suspect]
     Indication: NON-HODGKIN'S LYMPHOMA
     Dosage: SEE IMAGE
     Route: 042
     Dates: start: 20040101, end: 20040101
  3. ZEVALIN [Suspect]
     Indication: NON-HODGKIN'S LYMPHOMA
     Dosage: SEE IMAGE
     Route: 042
     Dates: start: 20040801, end: 20040801
  4. ZEVALIN [Suspect]
     Indication: NON-HODGKIN'S LYMPHOMA
     Dosage: SEE IMAGE
     Route: 042
     Dates: start: 20040801, end: 20040801
  5. PREDNISONE [Concomitant]

REACTIONS (12)
  - BIOPSY SKIN ABNORMAL [None]
  - CANDIDIASIS [None]
  - DRUG INEFFECTIVE [None]
  - LICHEN PLANUS [None]
  - LIP HAEMORRHAGE [None]
  - MORGANELLA INFECTION [None]
  - ORAL CANDIDIASIS [None]
  - PARAKERATOSIS [None]
  - PARANEOPLASTIC SYNDROME [None]
  - PARAPSORIASIS [None]
  - RASH PAPULOSQUAMOUS [None]
  - VIRAL RASH [None]
